FAERS Safety Report 8242649-4 (Version None)
Quarter: 2012Q1

REPORT INFORMATION
  Report Type: 
  Country: None (occurrence: None)
  Receive Date: 20120329
  Receipt Date: 20120327
  Transmission Date: 20120608
  Serious: Yes (Hospitalization)
  Sender: FDA-Public Use
  Company Number: PHHY2012FI026570

PATIENT
  Age: 88 Year
  Sex: Female
  Weight: 45 kg

DRUGS (2)
  1. SANDOSTATIN LAR [Suspect]
     Indication: PANCREATIC CARCINOMA
  2. SANDOSTATIN LAR [Suspect]
     Dosage: 10 MG, UNK
     Route: 030
     Dates: start: 20120223

REACTIONS (4)
  - BILIARY TRACT INFECTION [None]
  - PYREXIA [None]
  - GENERAL PHYSICAL HEALTH DETERIORATION [None]
  - MEDICATION ERROR [None]
